FAERS Safety Report 22173711 (Version 1)
Quarter: 2023Q2

REPORT INFORMATION
  Report Type: Spontaneous
  Country: DE (occurrence: DE)
  Receive Date: 20230404
  Receipt Date: 20230404
  Transmission Date: 20230722
  Serious: Yes (Congenital Anomaly)
  Sender: FDA-Public Use
  Company Number: DE-EMBRYOTOX-202205593

PATIENT
  Age: 1 Day
  Sex: Female
  Weight: 3.45 kg

DRUGS (2)
  1. SERTRALINE [Suspect]
     Active Substance: SERTRALINE HYDROCHLORIDE
     Indication: Depression
     Dosage: 75 MILLIGRAM, QD (75 [MG/D ]) (0.- 37.6 GESTA)
     Route: 064
     Dates: start: 20220222, end: 20221114
  2. METHYLPHENIDATE [Suspect]
     Active Substance: METHYLPHENIDATE
     Indication: Attention deficit hyperactivity disorder
     Dosage: 30 MILLIGRAM, QD (30 [MG/D 0.-37.6 GESTATIONA)
     Route: 064
     Dates: start: 20220222, end: 20221114

REACTIONS (4)
  - Atrial septal defect [Unknown]
  - Pulmonary valve stenosis [Unknown]
  - Pulmonary artery stenosis [Unknown]
  - Foetal exposure during pregnancy [Unknown]

NARRATIVE: CASE EVENT DATE: 20221101
